FAERS Safety Report 15754671 (Version 1)
Quarter: 2018Q4

REPORT INFORMATION
  Report Type: Spontaneous
  Country: NL (occurrence: NL)
  Receive Date: 20181224
  Receipt Date: 20181224
  Transmission Date: 20190205
  Serious: Yes (Disabling)
  Sender: FDA-Public Use
  Company Number: NL-TEVA-2018-NL-989905

PATIENT
  Age: 44 Year
  Sex: Male
  Weight: 79 kg

DRUGS (1)
  1. PYRIDOXINE TABLET, 100 MG (MILLIGRAM) [Suspect]
     Active Substance: PYRIDOXINE
     Indication: BLOOD HOMOCYSTEINE INCREASED
     Dosage: 1 DOSAGE FORMS DAILY;
     Route: 065
     Dates: start: 19990503

REACTIONS (3)
  - Neuropathy peripheral [Not Recovered/Not Resolved]
  - Memory impairment [Not Recovered/Not Resolved]
  - Arthralgia [Not Recovered/Not Resolved]

NARRATIVE: CASE EVENT DATE: 2002
